FAERS Safety Report 10015406 (Version 3)
Quarter: 2014Q4

REPORT INFORMATION
  Report Type: Spontaneous
  Country: US (occurrence: US)
  Receive Date: 20140317
  Receipt Date: 20141103
  Transmission Date: 20150528
  Serious: No
  Sender: FDA-Public Use
  Company Number: US-009507513-1403USA001256

PATIENT
  Age: 36 Year
  Sex: Female
  Weight: 54.42 kg

DRUGS (1)
  1. NUVARING [Suspect]
     Active Substance: ETHINYL ESTRADIOL\ETONOGESTREL
     Indication: CONTRACEPTION
     Dosage: 1 DF, 1 RING 3 WEEKS ON AND 1 WEEK OFF,
     Route: 067
     Dates: start: 201401

REACTIONS (4)
  - Product quality issue [Unknown]
  - Inappropriate schedule of drug administration [Unknown]
  - Withdrawal bleed [Unknown]
  - Drug administration error [Unknown]

NARRATIVE: CASE EVENT DATE: 20140303
